FAERS Safety Report 15682411 (Version 4)
Quarter: 2018Q4

REPORT INFORMATION
  Report Type: Spontaneous
  Country: ET (occurrence: ET)
  Receive Date: 20181203
  Receipt Date: 20181221
  Transmission Date: 20190205
  Serious: Yes (Death, Other)
  Sender: FDA-Public Use
  Company Number: ET-PFIZER INC-2018494618

PATIENT
  Age: 8 Year
  Sex: Female

DRUGS (1)
  1. ZITHROMAX [Suspect]
     Active Substance: AZITHROMYCIN DIHYDRATE
     Indication: TRACHOMA
     Dosage: 500 MG (2 TABLETS), SINGLE (STAT, AT ONCE)
     Route: 048
     Dates: start: 20181121, end: 20181121

REACTIONS (7)
  - Cardiovascular insufficiency [Fatal]
  - Trismus [Unknown]
  - Respiratory depression [Fatal]
  - Abdominal pain [Fatal]
  - Asthenia [Fatal]
  - Vomiting [Unknown]
  - Product use issue [Unknown]

NARRATIVE: CASE EVENT DATE: 20181121
